FAERS Safety Report 9226787 (Version 1)
Quarter: 2013Q1

REPORT INFORMATION
  Report Type: Spontaneous
  Country: US (occurrence: None)
  Receive Date: 20120926
  Receipt Date: 20120926
  Transmission Date: 20140127
  Serious: Yes (Other)
  Sender: FDA-Public Use
  Company Number: AUR-APL-2011-06153

PATIENT
  Age: 48 Year
  Sex: Female
  Weight: 54.89 kg

DRUGS (1)
  1. ALENDRONIC ACID ( ALENDRONIC ACID) [Suspect]
     Indication: OSTEOPOROSIS
     Dosage: 70 MG, 1 WK, ORAL
     Route: 048
     Dates: start: 20111001, end: 20111203

REACTIONS (1)
  - Rash pruritic [None]
